FAERS Safety Report 16579121 (Version 1)
Quarter: 2019Q3

REPORT INFORMATION
  Report Type: Report from Study
  Country: US (occurrence: US)
  Receive Date: 20190716
  Receipt Date: 20190716
  Transmission Date: 20191004
  Serious: Yes (Life-Threatening, Hospitalization, Other)
  Sender: FDA-Public Use
  Company Number: US-AMGEN-USACT2019113310

PATIENT
  Age: 61 Year
  Sex: Female

DRUGS (2)
  1. TALIMOGENE LAHERPAREPVEC [Suspect]
     Active Substance: TALIMOGENE LAHERPAREPVEC
     Indication: TRIPLE NEGATIVE BREAST CANCER
     Dosage: 106 PFU
     Route: 065
  2. ABRAXANE [Suspect]
     Active Substance: PACLITAXEL
     Indication: TRIPLE NEGATIVE BREAST CANCER
     Dosage: 80 MILLIGRAM/SQ. METER
     Route: 065

REACTIONS (1)
  - Embolism [Unknown]

NARRATIVE: CASE EVENT DATE: 20190711
